FAERS Safety Report 24842574 (Version 4)
Quarter: 2025Q4

REPORT INFORMATION
  Report Type: Spontaneous
  Country: US (occurrence: US)
  Receive Date: 20250115
  Receipt Date: 20251015
  Transmission Date: 20260118
  Serious: No
  Sender: SANOFI AVENTIS
  Company Number: US-SA-2025SA009390

PATIENT
  Age: 62 Year
  Sex: Female

DRUGS (2)
  1. DUPIXENT [Suspect]
     Active Substance: DUPILUMAB
     Indication: Asthma
     Dosage: 600 MG, QOW
     Route: 058
     Dates: start: 202410, end: 202410
  2. DUPIXENT [Suspect]
     Active Substance: DUPILUMAB
     Dosage: 300 MG, QOW
     Route: 058
     Dates: start: 2024

REACTIONS (7)
  - Sleep disorder [Not Recovered/Not Resolved]
  - Dyspnoea [Not Recovered/Not Resolved]
  - Chest discomfort [Not Recovered/Not Resolved]
  - Product dose omission in error [Not Recovered/Not Resolved]
  - Asthma [Unknown]
  - Product dose omission issue [Unknown]
  - Extra dose administered [Unknown]

NARRATIVE: CASE EVENT DATE: 20240101
